FAERS Safety Report 7322689-X (Version None)
Quarter: 2011Q1

REPORT INFORMATION
  Report Type: 
  Country: None (occurrence: None)
  Receive Date: 20110301
  Receipt Date: 20100218
  Transmission Date: 20110831
  Serious: No
  Sender: FDA-Public Use
  Company Number: US-PFIZER INC-2010026407

PATIENT
  Age: 75 Year
  Sex: Male

DRUGS (2)
  1. GLUCOTROL [Suspect]
  2. PROCARDIA XL [Concomitant]

REACTIONS (1)
  - UNEVALUABLE EVENT [None]
